FAERS Safety Report 5139512-4 (Version None)
Quarter: 2006Q4

REPORT INFORMATION
  Report Type: 
  Country: None (occurrence: None)
  Receive Date: 20061030
  Receipt Date: 20061024
  Transmission Date: 20070319
  Serious: Yes (Hospitalization)
  Sender: FDA-Public Use
  Company Number: GB-ROXANE LABORATORIES, INC-2006-BP-12522RO

PATIENT
  Age: 37 Year
  Sex: Male

DRUGS (2)
  1. METHOTREXATE [Suspect]
     Indication: PSORIASIS
  2. SULFASALAZINE [Suspect]
     Indication: PSORIASIS
     Dosage: 2 G/DAY

REACTIONS (1)
  - LEISHMANIASIS [None]
